FAERS Safety Report 6609265-9 (Version None)
Quarter: 2010Q1

REPORT INFORMATION
  Report Type: 
  Country: None (occurrence: None)
  Receive Date: 20100224
  Receipt Date: 20100219
  Transmission Date: 20100710
  Serious: Yes (Other)
  Sender: FDA-Public Use
  Company Number: WWISSUE-400

PATIENT

DRUGS (2)
  1. CIPROFLOXACIN [Suspect]
     Indication: DIARRHOEA
     Dates: start: 20091126, end: 20091130
  2. CYMBALTA 40 MG TABLETS [Concomitant]

REACTIONS (2)
  - CONDITION AGGRAVATED [None]
  - DIARRHOEA [None]
